FAERS Safety Report 6155373-9 (Version None)
Quarter: 2009Q2

REPORT INFORMATION
  Report Type: 
  Country: None (occurrence: None)
  Receive Date: 20090415
  Receipt Date: 20090406
  Transmission Date: 20091009
  Serious: Yes (Life-Threatening, Hospitalization)
  Sender: FDA-Public Use
  Company Number: TW-B.I. PHARMACEUTICALS,INC./RIDGEFIELD-2009-DE-02870GD

PATIENT
  Age: 81 Year
  Sex: Female

DRUGS (7)
  1. TELMISARTAN [Suspect]
     Indication: HYPERTENSION
     Dosage: 40MG
  2. LERCANIDIPINE [Suspect]
     Indication: HYPERTENSION
     Dosage: 10MG
  3. INDAPAMIDE [Suspect]
     Indication: HYPERTENSION
     Dosage: 1.5MG
  4. SPIRONOLACTONE [Suspect]
     Indication: ASCITES
     Dosage: 50MG
     Dates: start: 20070424
  5. FUROSEMIDE [Suspect]
     Indication: ASCITES
     Dosage: 20MG
     Dates: start: 20070424
  6. THALIDOMIDE [Suspect]
     Indication: HEPATIC NEOPLASM MALIGNANT RECURRENT
     Dosage: 50MG
     Dates: start: 20070425
  7. THALIDOMIDE [Suspect]
     Dosage: 100MG

REACTIONS (9)
  - ABDOMINAL PAIN UPPER [None]
  - CHEST DISCOMFORT [None]
  - DIZZINESS [None]
  - DYSPNOEA [None]
  - HYPERKALAEMIA [None]
  - HYPOTENSION [None]
  - NODAL RHYTHM [None]
  - SICK SINUS SYNDROME [None]
  - TUMOUR LYSIS SYNDROME [None]
